FAERS Safety Report 6456985-5 (Version None)
Quarter: 2009Q4

REPORT INFORMATION
  Report Type: 
  Country: None (occurrence: None)
  Receive Date: 20091125
  Receipt Date: 20091117
  Transmission Date: 20100525
  Serious: Yes (Other)
  Sender: FDA-Public Use
  Company Number: FR-PFIZER INC-2009298691

PATIENT
  Age: 49 Year
  Sex: Female

DRUGS (7)
  1. TAHOR [Suspect]
     Dosage: 10 MG, UNK
     Dates: start: 20070101
  2. HYPERIUM [Concomitant]
     Dosage: UNK
  3. AMLODIPINE [Concomitant]
     Dosage: UNK
  4. COKENZEN [Concomitant]
     Dosage: UNK
  5. EUPANTOL [Concomitant]
     Dosage: UNK
  6. PREVISCAN [Concomitant]
     Dosage: UNK
  7. STABLON [Concomitant]
     Dosage: UNK

REACTIONS (4)
  - ARTHRALGIA [None]
  - MYALGIA [None]
  - TENDON INJURY [None]
  - TENOSYNOVITIS STENOSANS [None]
